FAERS Safety Report 5219823-4 (Version None)
Quarter: 2006Q4

REPORT INFORMATION
  Report Type: 
  Country: None (occurrence: None)
  Receive Date: 20061201
  Receipt Date: 20060718
  Transmission Date: 20070319
  Serious: No
  Sender: FDA-Public Use
  Company Number: 2006PV017752

PATIENT
  Age: 52 Year
  Sex: Female
  Weight: 123.3784 kg

DRUGS (3)
  1. BYETTA [Suspect]
     Indication: DIABETES MELLITUS NON-INSULIN-DEPENDENT
     Dosage: 5 MCG;BID;SC
     Route: 058
     Dates: start: 20060713, end: 20060807
  2. SYNTHROID [Suspect]
  3. AVANDIA [Concomitant]

REACTIONS (12)
  - ABDOMINAL DISTENSION [None]
  - ANXIETY [None]
  - BLOOD GLUCOSE DECREASED [None]
  - DIZZINESS [None]
  - FEELING COLD [None]
  - FEELING HOT [None]
  - FEELING JITTERY [None]
  - INJECTION SITE ERYTHEMA [None]
  - INJECTION SITE NODULE [None]
  - INJECTION SITE URTICARIA [None]
  - NAUSEA [None]
  - WEIGHT DECREASED [None]
